FAERS Safety Report 5984342-4 (Version None)
Quarter: 2008Q4

REPORT INFORMATION
  Report Type: 
  Country: None (occurrence: None)
  Receive Date: 20081208
  Receipt Date: 20081201
  Transmission Date: 20090506
  Serious: Yes (Other)
  Sender: FDA-Public Use
  Company Number: PHEH2008US10724

PATIENT
  Sex: Female

DRUGS (11)
  1. TRILEPTAL [Interacting]
     Dosage: UNK, UNK
  2. NEXIUM [Interacting]
     Dosage: UNK, UNK
  3. LAMICTAL ^BURROUGHS WELLCOME^ [Interacting]
     Dosage: UNK, UNK
  4. EFFEXOR XR [Suspect]
     Indication: DEPRESSION
     Dosage: 37.5 MG, BID
     Route: 048
     Dates: start: 20050101
  5. ACETYLSALICYLIC ACID SRT [Concomitant]
     Dosage: 80 MG, QD
     Dates: start: 20030101
  6. PRAVASTATIN [Concomitant]
     Dosage: 40 MG, QD
     Dates: start: 20080301
  7. ASCORBIC ACID [Concomitant]
     Dosage: 1-3 TABLETS, DAILY
     Dates: start: 20080701
  8. ZINC [Concomitant]
     Dosage: UNK, UNK
  9. VITAMINS WITH MINERALS [Concomitant]
     Dosage: UNK, UNK
  10. FISH OIL, HYDROGENATED [Concomitant]
     Dosage: UNK, UNK
  11. VITAMIN E [Concomitant]
     Dosage: UNK, UNK

REACTIONS (9)
  - ANGINA PECTORIS [None]
  - BLOOD GLUCOSE INCREASED [None]
  - CONVULSION [None]
  - DEPRESSION [None]
  - DIABETES MELLITUS [None]
  - DRUG INTERACTION [None]
  - HYPERTENSION [None]
  - HYPONATRAEMIA [None]
  - RASH [None]
